FAERS Safety Report 9886904 (Version 4)
Quarter: 2014Q2

REPORT INFORMATION
  Report Type: Report from Study
  Country: TN (occurrence: TN)
  Receive Date: 20140210
  Receipt Date: 20140527
  Transmission Date: 20141212
  Serious: Yes (Hospitalization)
  Sender: FDA-Public Use
  Company Number: TN-US-EMD SERONO, INC.-7267068

PATIENT
  Sex: Female

DRUGS (8)
  1. REBIF [Suspect]
     Indication: MULTIPLE SCLEROSIS
     Route: 058
     Dates: start: 2011, end: 2012
  2. REBIF [Suspect]
     Route: 058
     Dates: start: 2012, end: 20140113
  3. REBIF [Suspect]
     Route: 058
     Dates: start: 20140120
  4. VITAMIN E                          /00110501/ [Concomitant]
     Indication: PRODUCT USED FOR UNKNOWN INDICATION
     Route: 048
     Dates: start: 2007
  5. VITAMIN C                          /00008001/ [Concomitant]
     Indication: PRODUCT USED FOR UNKNOWN INDICATION
     Route: 048
     Dates: start: 2007
  6. VITAMIN D                          /00107901/ [Concomitant]
     Indication: PRODUCT USED FOR UNKNOWN INDICATION
     Route: 048
     Dates: start: 2007
  7. PANADOL                            /00020001/ [Concomitant]
     Indication: HEADACHE
     Dosage: 3 TABLETS IF NECCESSARY
     Dates: start: 2012
  8. PANADOL                            /00020001/ [Concomitant]
     Indication: DISCOMFORT

REACTIONS (7)
  - Joint swelling [Not Recovered/Not Resolved]
  - Abasia [Recovering/Resolving]
  - Gait disturbance [Not Recovered/Not Resolved]
  - Pain [Not Recovered/Not Resolved]
  - Multiple sclerosis [Unknown]
  - Multiple sclerosis relapse [Unknown]
  - Drug dose omission [Recovered/Resolved]
